FAERS Safety Report 15288707 (Version 11)
Quarter: 2019Q2

REPORT INFORMATION
  Report Type: Report from Study
  Country: US (occurrence: US)
  Receive Date: 20180817
  Receipt Date: 20190502
  Transmission Date: 20190711
  Serious: Yes (Other)
  Sender: FDA-Public Use
  Company Number: US-CLOVIS ONCOLOGY-CLO-2018-000921

PATIENT
  Age: 71 Year
  Sex: Female

DRUGS (6)
  1. RUBRACA [Suspect]
     Active Substance: RUCAPARIB CAMSYLATE
     Indication: OVARIAN CANCER
     Dosage: 600 MG, BID
     Route: 048
     Dates: start: 20180710, end: 20181001
  2. RUBRACA [Suspect]
     Active Substance: RUCAPARIB CAMSYLATE
     Dosage: 300 MG, BID
     Route: 048
     Dates: start: 20181015
  3. RUBRACA [Suspect]
     Active Substance: RUCAPARIB CAMSYLATE
     Dosage: 600 MG, BID
     Route: 048
     Dates: start: 20190401
  4. RUBRACA [Suspect]
     Active Substance: RUCAPARIB CAMSYLATE
     Dosage: 600 MG, Q1200H
     Route: 048
     Dates: start: 20180707, end: 20180813
  5. RUBRACA [Suspect]
     Active Substance: RUCAPARIB CAMSYLATE
     Dosage: 500 MG, BID
     Route: 048
     Dates: start: 20180820, end: 20181001
  6. RUBRACA [Suspect]
     Active Substance: RUCAPARIB CAMSYLATE
     Dosage: 300 MG, BID
     Route: 048
     Dates: start: 20181016

REACTIONS (21)
  - Cough [Unknown]
  - Back pain [Unknown]
  - Constipation [Unknown]
  - Platelet count decreased [Recovering/Resolving]
  - Pruritus [Recovering/Resolving]
  - Alanine aminotransferase increased [Recovering/Resolving]
  - Fatigue [Recovering/Resolving]
  - Nausea [Recovering/Resolving]
  - Diarrhoea [Recovered/Resolved]
  - Depressed mood [Recovered/Resolved]
  - Aspartate aminotransferase increased [Recovering/Resolving]
  - Nausea [Unknown]
  - Weight increased [Unknown]
  - Neuropathy peripheral [Not Recovered/Not Resolved]
  - Sunburn [Unknown]
  - Taste disorder [Recovering/Resolving]
  - Asthenia [Recovering/Resolving]
  - Abdominal pain [Unknown]
  - White blood cell count decreased [Unknown]
  - Restlessness [Unknown]
  - Sensitive skin [Unknown]

NARRATIVE: CASE EVENT DATE: 2018
